FAERS Safety Report 14180513 (Version 3)
Quarter: 2017Q4

REPORT INFORMATION
  Report Type: Spontaneous
  Country: ES (occurrence: ES)
  Receive Date: 20171110
  Receipt Date: 20171211
  Transmission Date: 20180321
  Serious: Yes (Other)
  Sender: FDA-Public Use
  Company Number: ES-GILEAD-2017-0303696

PATIENT
  Age: 60 Year
  Sex: Male

DRUGS (1)
  1. ATRIPLA [Suspect]
     Active Substance: EFAVIRENZ\EMTRICITABINE\TENOFOVIR DISOPROXIL FUMARATE
     Indication: HIV INFECTION
     Dosage: UNK
     Route: 065
     Dates: start: 201503, end: 201707

REACTIONS (5)
  - Osteoporosis [Unknown]
  - Spinal fracture [Unknown]
  - Urine protein/creatinine ratio abnormal [Recovered/Resolved]
  - Osteopenia [Unknown]
  - Protein urine present [Unknown]

NARRATIVE: CASE EVENT DATE: 201703
